FAERS Safety Report 5524391-3 (Version None)
Quarter: 2007Q4

REPORT INFORMATION
  Report Type: 
  Country: None (occurrence: None)
  Receive Date: 20071121
  Receipt Date: 20071115
  Transmission Date: 20080405
  Serious: Yes (Hospitalization)
  Sender: FDA-Public Use
  Company Number: US-PFIZER INC-2007096597

PATIENT
  Sex: Male

DRUGS (2)
  1. CADUET [Suspect]
     Indication: HYPERTENSION
     Route: 048
     Dates: start: 20060101, end: 20071101
  2. CADUET [Suspect]
     Indication: DYSLIPIDAEMIA

REACTIONS (3)
  - MUSCULOSKELETAL DISORDER [None]
  - NIGHT SWEATS [None]
  - PYREXIA [None]
